FAERS Safety Report 25817005 (Version 1)
Quarter: 2025Q3

REPORT INFORMATION
  Report Type: Other
  Country: EU (occurrence: EU)
  Receive Date: 20250918
  Receipt Date: 20250918
  Transmission Date: 20251021
  Serious: Yes (Other)
  Sender: MACLEODS
  Company Number: EU-SUN PHARMACEUTICAL INDUSTRIES INC-2025R1-512463

PATIENT

DRUGS (27)
  1. APIXABAN [Suspect]
     Active Substance: APIXABAN
     Indication: Atrial fibrillation
     Route: 065
  2. PANTOPRAZOLE [Suspect]
     Active Substance: PANTOPRAZOLE
     Indication: Ischaemic stroke
     Route: 065
  3. PANTOPRAZOLE [Suspect]
     Active Substance: PANTOPRAZOLE
     Indication: Cardiac failure
  4. PANTOPRAZOLE [Suspect]
     Active Substance: PANTOPRAZOLE
     Indication: Sleep disorder
  5. ROSUVASTATIN [Suspect]
     Active Substance: ROSUVASTATIN
     Indication: Ischaemic stroke
     Route: 065
  6. ROSUVASTATIN [Suspect]
     Active Substance: ROSUVASTATIN
     Indication: Cardiac failure
  7. ROSUVASTATIN [Suspect]
     Active Substance: ROSUVASTATIN
     Indication: Sleep disorder
  8. TRAMADOL [Suspect]
     Active Substance: TRAMADOL
     Indication: Back pain
     Dosage: 100 MILLIGRAM, TID
     Route: 048
  9. DAPAGLIFLOZIN [Suspect]
     Active Substance: DAPAGLIFLOZIN
     Indication: Ischaemic stroke
     Route: 065
  10. DAPAGLIFLOZIN [Suspect]
     Active Substance: DAPAGLIFLOZIN
     Indication: Cardiac failure
  11. DAPAGLIFLOZIN [Suspect]
     Active Substance: DAPAGLIFLOZIN
     Indication: Sleep disorder
  12. RAMIPRIL [Suspect]
     Active Substance: RAMIPRIL
     Indication: Atrial fibrillation
     Route: 065
  13. RAMIPRIL [Suspect]
     Active Substance: RAMIPRIL
     Indication: Ischaemic stroke
  14. RAMIPRIL [Suspect]
     Active Substance: RAMIPRIL
     Indication: Sleep disorder
  15. RAMIPRIL [Suspect]
     Active Substance: RAMIPRIL
     Indication: Cardiac failure
  16. ASPIRIN [Suspect]
     Active Substance: ASPIRIN
     Indication: Ischaemic stroke
     Route: 065
  17. ASPIRIN [Suspect]
     Active Substance: ASPIRIN
     Indication: Cardiac failure
  18. ASPIRIN [Suspect]
     Active Substance: ASPIRIN
     Indication: Sleep disorder
  19. METOPROLOL [Suspect]
     Active Substance: METOPROLOL
     Indication: Atrial fibrillation
     Dosage: 50 MILLIGRAM, BID
     Route: 048
  20. METOPROLOL [Suspect]
     Active Substance: METOPROLOL
     Indication: Ischaemic stroke
  21. METOPROLOL [Suspect]
     Active Substance: METOPROLOL
     Indication: Sleep disorder
  22. METOPROLOL [Suspect]
     Active Substance: METOPROLOL
     Indication: Cardiac failure
  23. TORSEMIDE [Suspect]
     Active Substance: TORSEMIDE
     Indication: Ischaemic stroke
     Route: 065
  24. TORSEMIDE [Suspect]
     Active Substance: TORSEMIDE
     Indication: Cardiac failure
  25. TORSEMIDE [Suspect]
     Active Substance: TORSEMIDE
     Indication: Sleep disorder
  26. AMIODARONE [Suspect]
     Active Substance: AMIODARONE
     Indication: Atrial fibrillation
     Route: 048
  27. ESTAZOLAM [Concomitant]
     Active Substance: ESTAZOLAM
     Indication: Insomnia
     Dosage: 4 MG FOR THE NIGHT
     Route: 065

REACTIONS (5)
  - Arrhythmia [Unknown]
  - Drug-disease interaction [Unknown]
  - Disease risk factor [Unknown]
  - Vomiting [Unknown]
  - Nausea [Unknown]
